FAERS Safety Report 23919545 (Version 2)
Quarter: 2024Q3

REPORT INFORMATION
  Report Type: Report from Study
  Country: NL (occurrence: NL)
  Receive Date: 20240530
  Receipt Date: 20240708
  Transmission Date: 20241017
  Serious: Yes (Hospitalization)
  Sender: RECORDATI
  Company Number: NL-RECORDATI-2024001382

PATIENT

DRUGS (2)
  1. SIGNIFOR LAR [Suspect]
     Active Substance: PASIREOTIDE PAMOATE
     Indication: Acromegaly
     Dosage: 40MG SOLVENS 2ML INJECTION (DOSE 40 MG, ONCE EVERY 4 WEEK)
     Route: 030
     Dates: start: 20221115, end: 20240126
  2. SIGNIFOR LAR [Suspect]
     Active Substance: PASIREOTIDE PAMOATE
     Dosage: 40MG SOLVENS 2ML INJECTION (DOSE 40 MG, ONCE EVERY 4 WEEK)
     Route: 030
     Dates: start: 202405

REACTIONS (2)
  - Premature delivery [Unknown]
  - Maternal exposure during pregnancy [Recovered/Resolved]

NARRATIVE: CASE EVENT DATE: 20230101
